FAERS Safety Report 6442303-5 (Version None)
Quarter: 2009Q4

REPORT INFORMATION
  Report Type: 
  Country: None (occurrence: None)
  Receive Date: 20091112
  Receipt Date: 20091007
  Transmission Date: 20100525
  Serious: Yes (Other)
  Sender: FDA-Public Use
  Company Number: 2009AL007043

PATIENT
  Age: 25 Year
  Sex: Female

DRUGS (4)
  1. CITALOPRAM HYDROBROMIDE [Suspect]
     Indication: DEPRESSION
     Dosage: 10 MG; PO
     Route: 048
     Dates: start: 20090821, end: 20090904
  2. LANSOPRAZOLE [Concomitant]
  3. MAALOX [Concomitant]
  4. CO-DYDRAMOL [Concomitant]

REACTIONS (2)
  - EMOTIONAL DISTRESS [None]
  - HALLUCINATIONS, MIXED [None]
